FAERS Safety Report 10592649 (Version 1)
Quarter: 2014Q4

REPORT INFORMATION
  Report Type: Spontaneous
  Country: BR (occurrence: BR)
  Receive Date: 20141119
  Receipt Date: 20141119
  Transmission Date: 20150529
  Serious: Yes (Hospitalization)
  Sender: FDA-Public Use
  Company Number: BR-GE HEALTHCARE MEDICAL DIAGNOSTICS-OMPQ-PR-1411S-1456

PATIENT
  Age: 9 Year
  Sex: Female

DRUGS (3)
  1. OMNIPAQUE [Suspect]
     Active Substance: IOHEXOL
     Indication: DIAGNOSTIC PROCEDURE
  2. TELEBRIX [Concomitant]
     Active Substance: MEGLUMINE IOXITHALAMATE
     Route: 048
     Dates: start: 20141106, end: 20141106
  3. OMNIPAQUE [Suspect]
     Active Substance: IOHEXOL
     Indication: SPLENIC CYST
     Route: 042
     Dates: start: 20141106, end: 20141106

REACTIONS (3)
  - Diarrhoea [Recovered/Resolved]
  - Eyelid oedema [Recovered/Resolved]
  - Vomiting [Recovered/Resolved]

NARRATIVE: CASE EVENT DATE: 20141106
